FAERS Safety Report 24606544 (Version 1)
Quarter: 2024Q4

REPORT INFORMATION
  Report Type: Spontaneous
  Country: US (occurrence: US)
  Receive Date: 20241112
  Receipt Date: 20241112
  Transmission Date: 20250114
  Serious: No
  Sender: Kanchan Healthcare
  Company Number: US-Kanchan Healthcare INC-2164820

PATIENT
  Sex: Male

DRUGS (5)
  1. ETHAMBUTOL HYDROCHLORIDE [Suspect]
     Active Substance: ETHAMBUTOL HYDROCHLORIDE
     Indication: Product used for unknown indication
  2. AZITHROMYCIN ANHYDROUS [Suspect]
     Active Substance: AZITHROMYCIN ANHYDROUS
  3. AMIKACIN SULFATE [Concomitant]
     Active Substance: AMIKACIN SULFATE
  4. RIFAMPIN [Concomitant]
     Active Substance: RIFAMPIN
  5. RIFABUTIN [Suspect]
     Active Substance: RIFABUTIN

REACTIONS (1)
  - Drug ineffective [Unknown]
